FAERS Safety Report 7660525-2 (Version None)
Quarter: 2011Q3

REPORT INFORMATION
  Report Type: 
  Country: None (occurrence: None)
  Receive Date: 20110805
  Receipt Date: 20110802
  Transmission Date: 20111222
  Serious: Yes (Disabling)
  Sender: FDA-Public Use
  Company Number: AU-MERCK-1107USA01828

PATIENT
  Age: 65 Year
  Sex: Female

DRUGS (4)
  1. PREDNISONE [Concomitant]
     Route: 065
  2. PREDNISONE [Concomitant]
     Route: 065
  3. ZETIA [Suspect]
     Indication: HYPERCHOLESTEROLAEMIA
     Route: 048
     Dates: start: 20070101, end: 20110712
  4. SOLU-MEDROL [Concomitant]
     Route: 065
     Dates: end: 20100301

REACTIONS (2)
  - MUSCLE DISORDER [None]
  - MUSCULAR WEAKNESS [None]
